FAERS Safety Report 25217712 (Version 2)
Quarter: 2025Q2

REPORT INFORMATION
  Report Type: Report from Study
  Country: US (occurrence: US)
  Receive Date: 20250420
  Receipt Date: 20250520
  Transmission Date: 20250717
  Serious: No
  Sender: JOHNSON AND JOHNSON
  Company Number: US-JNJFOC-20250417801

PATIENT
  Age: 55 Year
  Sex: Female
  Weight: 79.38 kg

DRUGS (14)
  1. SPRAVATO [Suspect]
     Active Substance: ESKETAMINE
     Indication: Depression
     Dosage: ^56 MG, 1 TOTAL DOSE, RECENT DOSE^
     Route: 045
     Dates: start: 20250410, end: 20250410
  2. SPRAVATO [Suspect]
     Active Substance: ESKETAMINE
     Dosage: ^56 MG, 1 TOTAL DOSE^
     Route: 045
     Dates: start: 20250407, end: 20250407
  3. BUSPIRONE [Concomitant]
     Active Substance: BUSPIRONE HYDROCHLORIDE
     Indication: Social anxiety disorder
     Route: 048
     Dates: start: 20230511
  4. BUSPIRONE [Concomitant]
     Active Substance: BUSPIRONE HYDROCHLORIDE
     Indication: Obsessive-compulsive disorder
  5. ATOMOXETINE HYDROCHLORIDE [Concomitant]
     Active Substance: ATOMOXETINE HYDROCHLORIDE
     Indication: Major depression
     Route: 048
     Dates: start: 20240311
  6. ATOMOXETINE HYDROCHLORIDE [Concomitant]
     Active Substance: ATOMOXETINE HYDROCHLORIDE
     Indication: Generalised anxiety disorder
  7. ATOMOXETINE HYDROCHLORIDE [Concomitant]
     Active Substance: ATOMOXETINE HYDROCHLORIDE
     Indication: Obsessive-compulsive disorder
  8. ATOMOXETINE HYDROCHLORIDE [Concomitant]
     Active Substance: ATOMOXETINE HYDROCHLORIDE
     Indication: Social anxiety disorder
  9. GABAPENTIN [Concomitant]
     Active Substance: GABAPENTIN
     Indication: Social anxiety disorder
     Dosage: IN THE EVENING
     Route: 048
     Dates: start: 20230720
  10. GABAPENTIN [Concomitant]
     Active Substance: GABAPENTIN
     Indication: Obsessive-compulsive disorder
  11. GABAPENTIN [Concomitant]
     Active Substance: GABAPENTIN
     Indication: Generalised anxiety disorder
  12. MILNACIPRAN [Concomitant]
     Active Substance: MILNACIPRAN
     Indication: Social anxiety disorder
     Route: 048
     Dates: start: 20240805
  13. MILNACIPRAN [Concomitant]
     Active Substance: MILNACIPRAN
     Indication: Obsessive-compulsive disorder
  14. MILNACIPRAN [Concomitant]
     Active Substance: MILNACIPRAN
     Indication: Generalised anxiety disorder

REACTIONS (1)
  - Dissociation [Recovered/Resolved]

NARRATIVE: CASE EVENT DATE: 20250410
